FAERS Safety Report 6652539-6 (Version None)
Quarter: 2010Q1

REPORT INFORMATION
  Report Type: 
  Country: None (occurrence: None)
  Receive Date: 20100325
  Receipt Date: 20100325
  Transmission Date: 20100710
  Serious: No
  Sender: FDA-Public Use
  Company Number: None

PATIENT
  Sex: Male
  Weight: 63.5036 kg

DRUGS (2)
  1. ZICAM COLD REMEDY NASAL SWABS N/A MATRIXX [Suspect]
     Indication: NASOPHARYNGITIS
     Dosage: ONE SPRAY AS NEEDED NASAL, A FEW TIMES YR
     Route: 045
     Dates: start: 20030101, end: 20090101
  2. ZICAM COLD REMEDY NASAL GEL N/A MATRIXX [Suspect]
     Indication: NASOPHARYNGITIS
     Dosage: ONE SWAB AS NEEDED NASAL, FEW TIMES YR
     Route: 045
     Dates: start: 20030101, end: 20090101

REACTIONS (4)
  - ANOSMIA [None]
  - DYSGEUSIA [None]
  - EMOTIONAL DISORDER [None]
  - WEIGHT DECREASED [None]
